FAERS Safety Report 8347895-7 (Version None)
Quarter: 2012Q2

REPORT INFORMATION
  Report Type: 
  Country: None (occurrence: None)
  Receive Date: 20120509
  Receipt Date: 20120502
  Transmission Date: 20120825
  Serious: Yes (Other)
  Sender: FDA-Public Use
  Company Number: US-CELGENEUS-163-21880-12011547

PATIENT
  Sex: Female

DRUGS (10)
  1. POTASSIUM CHLORIDE [Concomitant]
     Dosage: 20 MILLIEQUIVALENTS
     Route: 048
  2. VALIUM [Concomitant]
     Dosage: 2.5 MILLIGRAM
     Route: 065
  3. REVLIMID [Suspect]
     Dosage: 25 MILLIGRAM
     Route: 048
     Dates: start: 20111223, end: 20111231
  4. PREDNISONE [Concomitant]
     Dosage: 10 MILLIGRAM
     Route: 048
  5. ASCORBIC ACID [Concomitant]
     Dosage: 1000 MILLIGRAM
     Route: 048
  6. PREMARIN [Concomitant]
     Dosage: .625 MILLIGRAM
     Route: 048
  7. VITAMIN D [Concomitant]
     Dosage: 50,000 UNITS
     Route: 065
  8. DYAZIDE [Concomitant]
     Dosage: 37.5/25
     Route: 048
  9. MAG OX [Concomitant]
     Dosage: 250 MILLIGRAM
     Route: 048
  10. CALCIUM + D [Concomitant]
     Dosage: 600 MILLIGRAM
     Route: 048

REACTIONS (5)
  - VISUAL IMPAIRMENT [None]
  - DIZZINESS [None]
  - SWELLING [None]
  - RASH [None]
  - HYPOTENSION [None]
